FAERS Safety Report 4693954-X (Version None)
Quarter: 2005Q2

REPORT INFORMATION
  Report Type: 
  Country: None (occurrence: None)
  Receive Date: 20050616
  Receipt Date: 20050601
  Transmission Date: 20051028
  Serious: Yes (Death, Other)
  Sender: FDA-Public Use
  Company Number: L05-USA-01970-01

PATIENT
  Age: 56 Year
  Sex: Female

DRUGS (2)
  1. CITALOPRAM [Suspect]
     Indication: DEPRESSION
     Dosage: 20 MG QD PO
     Route: 048
  2. LINEZOLID [Suspect]
     Indication: PYREXIA
     Dosage: 600 MG BID IV
     Route: 042

REACTIONS (11)
  - BONE MARROW DEPRESSION [None]
  - CEREBRAL HAEMORRHAGE [None]
  - CYTOMEGALOVIRUS VIRAEMIA [None]
  - ENTEROCOCCAL INFECTION [None]
  - FUSARIUM INFECTION [None]
  - HYPERTENSION [None]
  - ORTHOSTATIC HYPOTENSION [None]
  - PATHOGEN RESISTANCE [None]
  - PNEUMONIA [None]
  - RESPIRATORY FAILURE [None]
  - SEROTONIN SYNDROME [None]
